FAERS Safety Report 22267500 (Version 10)
Quarter: 2024Q1

REPORT INFORMATION
  Report Type: Spontaneous
  Country: US (occurrence: US)
  Receive Date: 20230429
  Receipt Date: 20240312
  Transmission Date: 20240409
  Serious: Yes (Other)
  Sender: FDA-Public Use
  Company Number: US-PFIZER INC-PV202300075171

PATIENT
  Age: 62 Year
  Sex: Female

DRUGS (3)
  1. CIBINQO [Suspect]
     Active Substance: ABROCITINIB
     Dosage: 100 MG
     Route: 048
  2. CIBINQO [Suspect]
     Active Substance: ABROCITINIB
     Dosage: 200 MG, 1X/DAY
     Route: 048
  3. CIBINQO [Suspect]
     Active Substance: ABROCITINIB
     Dosage: 100 MG
     Route: 048

REACTIONS (6)
  - Pneumonia [Unknown]
  - Drug ineffective [Unknown]
  - Product dispensing error [Unknown]
  - Eczema [Unknown]
  - Mental disorder [Unknown]
  - Insomnia [Not Recovered/Not Resolved]

NARRATIVE: CASE EVENT DATE: 20230101
